FAERS Safety Report 11509753 (Version 1)
Quarter: 2015Q3

REPORT INFORMATION
  Report Type: Spontaneous
  Country: US (occurrence: US)
  Receive Date: 20150915
  Receipt Date: 20150915
  Transmission Date: 20151125
  Serious: No
  Sender: FDA-Public Use
  Company Number: US-JNJFOC-20150400788

PATIENT
  Age: 33 Year
  Sex: Female
  Weight: 72.58 kg

DRUGS (9)
  1. ADVIL [Concomitant]
     Active Substance: IBUPROFEN
     Indication: PHARYNGITIS STREPTOCOCCAL
     Route: 065
  2. ADVIL [Concomitant]
     Active Substance: IBUPROFEN
     Indication: OROPHARYNGEAL PAIN
     Route: 065
  3. TYLENOL COLD MULTI-SYMPTOM COOL BURST LIQUID [Concomitant]
     Indication: OROPHARYNGEAL PAIN
     Route: 065
  4. TYLENOL COLD MULTI-SYMPTOM COOL BURST LIQUID [Concomitant]
     Indication: NASOPHARYNGITIS
     Route: 065
  5. TYLENOL COLD MULTI-SYMPTOM COOL BURST LIQUID [Concomitant]
     Indication: PHARYNGITIS STREPTOCOCCAL
     Route: 065
  6. TYLENOL COLD SORE THROAT EXTRA STRENGTH [Suspect]
     Active Substance: ACETAMINOPHEN
     Indication: OROPHARYNGEAL PAIN
     Dosage: 2 TABLESPOON
     Route: 048
     Dates: start: 20150328, end: 20150329
  7. TYLENOL COLD SORE THROAT EXTRA STRENGTH [Suspect]
     Active Substance: ACETAMINOPHEN
     Indication: PHARYNGITIS STREPTOCOCCAL
     Dosage: 2 TABLESPOON
     Route: 048
     Dates: start: 20150328, end: 20150329
  8. TYLENOL COLD SORE THROAT EXTRA STRENGTH [Suspect]
     Active Substance: ACETAMINOPHEN
     Indication: NASOPHARYNGITIS
     Dosage: 2 TABLESPOON
     Route: 048
     Dates: start: 20150328, end: 20150329
  9. ADVIL [Concomitant]
     Active Substance: IBUPROFEN
     Indication: NASOPHARYNGITIS
     Route: 065

REACTIONS (2)
  - Contraindicated drug administered [Unknown]
  - Drug ineffective [Unknown]
